FAERS Safety Report 7421187-2 (Version None)
Quarter: 2011Q2

REPORT INFORMATION
  Report Type: 
  Country: None (occurrence: None)
  Receive Date: 20110418
  Receipt Date: 20110412
  Transmission Date: 20111010
  Serious: Yes (Other)
  Sender: FDA-Public Use
  Company Number: GB-ABBOTT-11P-167-0718620-00

PATIENT
  Age: 61 Year
  Sex: Female

DRUGS (3)
  1. METRONIDAZOLE [Concomitant]
     Indication: SECRETION DISCHARGE
     Route: 048
     Dates: start: 20110203, end: 20110205
  2. KLARICID [Suspect]
     Indication: PELVIC PAIN
     Route: 048
     Dates: start: 20110211, end: 20110212
  3. FLUCONAZOLE [Concomitant]
     Indication: PELVIC PAIN
     Route: 048
     Dates: start: 20110203, end: 20110210

REACTIONS (7)
  - HIATUS HERNIA [None]
  - PRODUCT QUALITY ISSUE [None]
  - HEART RATE INCREASED [None]
  - CONDITION AGGRAVATED [None]
  - WRONG TECHNIQUE IN DRUG USAGE PROCESS [None]
  - THROAT IRRITATION [None]
  - OESOPHAGEAL PAIN [None]
